FAERS Safety Report 8837732 (Version 3)
Quarter: 2014Q2

REPORT INFORMATION
  Report Type: Spontaneous
  Country: US (occurrence: US)
  Receive Date: 20121012
  Receipt Date: 20140630
  Transmission Date: 20141212
  Serious: Yes (Hospitalization, Disabling)
  Sender: FDA-Public Use
  Company Number: US-BAYER-2012-104446

PATIENT
  Age: 42 Year
  Sex: Female
  Weight: 44.44 kg

DRUGS (2)
  1. BEYAZ [Suspect]
     Dosage: UNK
     Dates: start: 20120201, end: 20120522
  2. PROTONIX [Concomitant]
     Indication: GASTROOESOPHAGEAL REFLUX PROPHYLAXIS

REACTIONS (5)
  - Deep vein thrombosis [None]
  - Limb injury [None]
  - Thrombosis [None]
  - Gait disturbance [None]
  - Peripheral swelling [None]
